FAERS Safety Report 7716436-7 (Version None)
Quarter: 2011Q3

REPORT INFORMATION
  Report Type: 
  Country: None (occurrence: None)
  Receive Date: 20110829
  Receipt Date: 20110819
  Transmission Date: 20111222
  Serious: Yes (Hospitalization)
  Sender: FDA-Public Use
  Company Number: JP-MERCK-1108USA03153

PATIENT
  Age: 52 Year
  Sex: Male

DRUGS (4)
  1. MICARDIS [Concomitant]
     Indication: HYPERTENSION
     Route: 048
     Dates: start: 20110609
  2. GASCON [Concomitant]
     Indication: DYSLIPIDAEMIA
     Route: 048
     Dates: start: 20110609, end: 20110818
  3. ZETIA [Suspect]
     Indication: DYSLIPIDAEMIA
     Route: 048
     Dates: start: 20110707, end: 20110818
  4. URSO 250 [Concomitant]
     Indication: DYSLIPIDAEMIA
     Route: 048
     Dates: start: 20110609

REACTIONS (4)
  - LOW DENSITY LIPOPROTEIN INCREASED [None]
  - HIGH DENSITY LIPOPROTEIN DECREASED [None]
  - BLOOD CHOLESTEROL INCREASED [None]
  - BLOOD TRIGLYCERIDES INCREASED [None]
